FAERS Safety Report 7781679-3 (Version None)
Quarter: 2011Q3

REPORT INFORMATION
  Report Type: 
  Country: None (occurrence: None)
  Receive Date: 20110927
  Receipt Date: 20110914
  Transmission Date: 20111222
  Serious: Yes (Other)
  Sender: FDA-Public Use
  Company Number: US-CEPHALON-2011004875

PATIENT
  Sex: Female
  Weight: 82 kg

DRUGS (2)
  1. NUVIGIL [Suspect]
     Indication: NARCOLEPSY
     Route: 048
     Dates: start: 20110901, end: 20110912
  2. PAROXETINE [Concomitant]
     Dates: start: 20010101

REACTIONS (6)
  - LIP BLISTER [None]
  - UNEVALUABLE EVENT [None]
  - EYE IRRITATION [None]
  - URTICARIA [None]
  - GENITAL BURNING SENSATION [None]
  - EYE PRURITUS [None]
